FAERS Safety Report 4429367-5 (Version None)
Quarter: 2004Q3

REPORT INFORMATION
  Report Type: 
  Country: None (occurrence: None)
  Receive Date: 20040818
  Receipt Date: 20040818
  Transmission Date: 20050211
  Serious: Yes (Life-Threatening, Hospitalization, Other)
  Sender: FDA-Public Use
  Company Number: None

PATIENT
  Age: 68 Year
  Sex: Female
  Weight: 72 kg

DRUGS (3)
  1. ANGIOMAX [Suspect]
     Indication: CORONARY ANGIOPLASTY
     Dosage: BOLUS 7.5 ML IV DRIP 18.2 MG/ML IV
     Route: 042
     Dates: start: 20040809
  2. ANGIOMAX [Suspect]
     Indication: STENT PLACEMENT
     Dosage: BOLUS 7.5 ML IV DRIP 18.2 MG/ML IV
     Route: 042
     Dates: start: 20040809
  3. ANGIOMAX [Suspect]

REACTIONS (3)
  - INFARCTION [None]
  - PROCEDURAL COMPLICATION [None]
  - THROMBOSIS [None]
